FAERS Safety Report 8986038 (Version 1)
Quarter: 2012Q4

REPORT INFORMATION
  Report Type: Spontaneous
  Country: US (occurrence: None)
  Receive Date: 20121214
  Receipt Date: 20121214
  Transmission Date: 20130627
  Serious: Yes (Hospitalization)
  Sender: FDA-Public Use
  Company Number: 2012SP004560

PATIENT
  Age: 65 Year
  Sex: Female

DRUGS (7)
  1. FLUOROURACIL [Suspect]
     Indication: COLORECTAL CANCER METASTATIC
     Dates: start: 2012, end: 2012
  2. IRINOTECAN HCL [Suspect]
     Indication: COLORECTAL CANCER METASTATIC
     Dates: start: 2012, end: 2012
  3. LEUCOVORIN [Suspect]
     Indication: COLORECTAL CANCER METASTATIC
     Dates: start: 2012, end: 2012
  4. AFLIBERCEPT [Suspect]
     Indication: COLORECTAL CANCER METASTATIC
     Dates: start: 2012, end: 2012
  5. SIMETICONE [Concomitant]
  6. PARACETAMOL [Concomitant]
  7. ONDANSETRON HYDROCHLORIDE [Concomitant]

REACTIONS (2)
  - Fall [None]
  - Vaginal haemorrhage [None]
